FAERS Safety Report 9902681 (Version 2)
Quarter: 2014Q1

REPORT INFORMATION
  Report Type: Spontaneous
  Country: ES (occurrence: ES)
  Receive Date: 20140217
  Receipt Date: 20140306
  Transmission Date: 20141002
  Serious: Yes (Death, Other)
  Sender: FDA-Public Use
  Company Number: ES-JNJFOC-20140204349

PATIENT
  Age: 40 Year
  Sex: Male

DRUGS (5)
  1. XEPLION [Suspect]
     Indication: SCHIZOPHRENIA, PARANOID TYPE
     Route: 030
     Dates: start: 20140109
  2. XEPLION [Suspect]
     Indication: SCHIZOPHRENIA, PARANOID TYPE
     Route: 030
     Dates: start: 20131212, end: 20131213
  3. XEPLION [Suspect]
     Indication: SCHIZOPHRENIA, PARANOID TYPE
     Route: 030
     Dates: start: 20131204, end: 20131205
  4. FOLIC ACID [Concomitant]
     Indication: HOMOCYSTINAEMIA
     Route: 065
  5. BECOZYM (NOS) [Concomitant]
     Indication: HOMOCYSTINAEMIA
     Route: 065

REACTIONS (7)
  - Completed suicide [Fatal]
  - Persecutory delusion [Fatal]
  - Depressed level of consciousness [Fatal]
  - Apathy [Fatal]
  - Musculoskeletal stiffness [Fatal]
  - Depressed mood [Unknown]
  - Sedation [Unknown]
